FAERS Safety Report 5570913-6 (Version None)
Quarter: 2007Q4

REPORT INFORMATION
  Report Type: 
  Country: None (occurrence: None)
  Receive Date: 20071219
  Receipt Date: 20071207
  Transmission Date: 20080405
  Serious: Yes (Hospitalization)
  Sender: FDA-Public Use
  Company Number: 2007BI002099

PATIENT
  Age: 56 Year
  Sex: Female

DRUGS (2)
  1. NATALIZUMAB [Suspect]
     Indication: MULTIPLE SCLEROSIS
     Dosage: 300 MG;QM;IV
     Route: 042
     Dates: start: 20070123
  2. ATIVAN [Concomitant]

REACTIONS (9)
  - ARTHRALGIA [None]
  - BACK DISORDER [None]
  - DEPRESSION [None]
  - FALL [None]
  - FLUSHING [None]
  - HEADACHE [None]
  - HYPERSENSITIVITY [None]
  - MUSCULOSKELETAL DISORDER [None]
  - NAUSEA [None]
